FAERS Safety Report 5675650-5 (Version None)
Quarter: 2008Q1

REPORT INFORMATION
  Report Type: 
  Country: None (occurrence: None)
  Receive Date: 20080321
  Receipt Date: 20080220
  Transmission Date: 20080703
  Serious: Yes (Hospitalization)
  Sender: FDA-Public Use
  Company Number: US-BAXTER-2008BH001606

PATIENT
  Age: 51 Year
  Sex: Female

DRUGS (4)
  1. HEPARIN LOCK-FLUSH [Suspect]
     Indication: INTRAVENOUS CATHETER MANAGEMENT
     Dosage: DOSE UNIT:UNKNOWN
     Route: 042
     Dates: start: 20071001, end: 20080116
  2. COUMADIN [Concomitant]
     Indication: ANTICOAGULANT THERAPY
     Route: 048
     Dates: start: 20071001
  3. TAXOTERE [Concomitant]
     Indication: BREAST CANCER
     Dosage: DOSE UNIT:UNKNOWN
     Route: 041
     Dates: start: 20071108, end: 20080110
  4. CYTOXAN [Concomitant]
     Indication: BREAST CANCER
     Dosage: DOSE UNIT:UNKNOWN
     Route: 041
     Dates: start: 20071108, end: 20080110

REACTIONS (6)
  - BLOOD PRESSURE INCREASED [None]
  - DIZZINESS [None]
  - DYSPNOEA [None]
  - HEART RATE INCREASED [None]
  - HYPOAESTHESIA [None]
  - SKIN INFECTION [None]
